FAERS Safety Report 12913182 (Version 1)
Quarter: 2016Q4

REPORT INFORMATION
  Report Type: Spontaneous
  Country: US (occurrence: US)
  Receive Date: 20161104
  Receipt Date: 20161104
  Transmission Date: 20170207
  Serious: No
  Sender: FDA-Public Use
  Company Number: US-ANACOR-2016ANA00261

PATIENT
  Sex: Female
  Weight: 62.59 kg

DRUGS (1)
  1. KERYDIN [Suspect]
     Active Substance: TAVABOROLE
     Indication: ONYCHOMYCOSIS
     Dosage: UNK, 1X/DAY
     Route: 061
     Dates: start: 201512, end: 201608

REACTIONS (8)
  - Application site haemorrhage [Recovered/Resolved]
  - Laceration [Recovered/Resolved]
  - Application site swelling [Recovering/Resolving]
  - Application site erythema [Recovering/Resolving]
  - Application site exfoliation [Recovered/Resolved]
  - Drug ineffective [Recovered/Resolved]
  - Application site vesicles [Recovered/Resolved]
  - Wound [Recovered/Resolved]
